FAERS Safety Report 9922469 (Version 1)
Quarter: 2014Q1

REPORT INFORMATION
  Report Type: Spontaneous
  Country: US (occurrence: US)
  Receive Date: 20140225
  Receipt Date: 20140225
  Transmission Date: 20141002
  Serious: No
  Sender: FDA-Public Use
  Company Number: US-MYLANLABS-2013S1010295

PATIENT
  Age: 82 Year
  Sex: Female
  Weight: 129.28 kg

DRUGS (2)
  1. ATENOLOL TABLETS, USP [Suspect]
     Indication: BLOOD PRESSURE
     Route: 048
     Dates: start: 20130502
  2. LASIX [Concomitant]
     Indication: OEDEMA

REACTIONS (2)
  - Weight increased [Not Recovered/Not Resolved]
  - Local swelling [Not Recovered/Not Resolved]
